FAERS Safety Report 13416121 (Version 8)
Quarter: 2019Q3

REPORT INFORMATION
  Report Type: Spontaneous
  Country: GB (occurrence: GB)
  Receive Date: 20170406
  Receipt Date: 20190827
  Transmission Date: 20191004
  Serious: Yes (Death, Hospitalization, Other)
  Sender: FDA-Public Use
  Company Number: GB-JNJFOC-20170400580

PATIENT
  Age: 35 Year
  Sex: Female
  Weight: 141 kg

DRUGS (27)
  1. CETIRIZINE HYDROCHLORIDE. [Suspect]
     Active Substance: CETIRIZINE HYDROCHLORIDE
     Indication: PRODUCT USED FOR UNKNOWN INDICATION
     Route: 065
  2. ATRACURIUM BESILATE [Suspect]
     Active Substance: ATRACURIUM BESYLATE
     Indication: PRODUCT USED FOR UNKNOWN INDICATION
     Route: 065
  3. TRIMETHOPRIM. [Suspect]
     Active Substance: TRIMETHOPRIM
     Indication: PRODUCT USED FOR UNKNOWN INDICATION
     Route: 065
  4. CLOZAPINE. [Suspect]
     Active Substance: CLOZAPINE
     Route: 065
     Dates: start: 20140916, end: 20140916
  5. CLOZAPINE. [Suspect]
     Active Substance: CLOZAPINE
     Route: 065
     Dates: start: 20140913, end: 20140913
  6. LITHIUM CARBONATE. [Suspect]
     Active Substance: LITHIUM CARBONATE
     Indication: PRODUCT USED FOR UNKNOWN INDICATION
     Route: 065
     Dates: start: 20141002, end: 201410
  7. MIDAZOLAM [Suspect]
     Active Substance: MIDAZOLAM HYDROCHLORIDE
     Indication: PRODUCT USED FOR UNKNOWN INDICATION
     Route: 065
  8. ZUCLOPENTHIXOL [Suspect]
     Active Substance: ZUCLOPENTHIXOL
     Indication: PRODUCT USED FOR UNKNOWN INDICATION
     Route: 065
  9. CLOZAPINE. [Suspect]
     Active Substance: CLOZAPINE
     Indication: BORDERLINE PERSONALITY DISORDER
     Route: 065
     Dates: start: 20140908, end: 20140908
  10. CLOZAPINE. [Suspect]
     Active Substance: CLOZAPINE
     Route: 065
     Dates: start: 20140921, end: 20140921
  11. CLOZAPINE. [Suspect]
     Active Substance: CLOZAPINE
     Dosage: 100 MG ONCE DAILY AND 250 MG ONCE DAILY, 2X/DAY (BID)
     Route: 065
     Dates: start: 20140929, end: 20140930
  12. CLOZAPINE. [Suspect]
     Active Substance: CLOZAPINE
     Route: 065
     Dates: start: 20140929, end: 20140930
  13. CLOZAPINE. [Suspect]
     Active Substance: CLOZAPINE
     Dosage: 75 MG ONCE DAILY AND 150 MG ONCE DAILY, 2X/DAY
     Route: 065
     Dates: start: 20140919, end: 20140919
  14. CLOZAPINE. [Suspect]
     Active Substance: CLOZAPINE
     Dosage: 100 MG ONCE DAILY AND 225 MG ONCE DAILY, 2X/DAY (BID)
     Route: 065
     Dates: start: 20140922, end: 20140928
  15. CLOZAPINE. [Suspect]
     Active Substance: CLOZAPINE
     Dosage: 50 MG ONCE DAILY AND 75 MG ONCE DAILY, 2X/DAY (BID)
     Route: 065
     Dates: start: 20140915, end: 20140915
  16. CLOZAPINE. [Suspect]
     Active Substance: CLOZAPINE
     Dosage: 75 MG ONCE DAILY AND 125 MG ONCE DAILY, 2X/DAY (BID)
     Route: 065
     Dates: start: 20140918, end: 20140918
  17. CLOZAPINE. [Suspect]
     Active Substance: CLOZAPINE
     Dosage: 75 MG ONCE DAILY AND 175 MG ONCE DAILY, 2X/DAY
     Route: 065
     Dates: start: 20140920, end: 20140920
  18. FENTANYL. [Suspect]
     Active Substance: FENTANYL
     Indication: PRODUCT USED FOR UNKNOWN INDICATION
     Route: 065
     Dates: start: 201409
  19. CLOZAPINE. [Suspect]
     Active Substance: CLOZAPINE
     Indication: POST-TRAUMATIC STRESS DISORDER
     Route: 065
     Dates: start: 20140910, end: 20140911
  20. CLOZAPINE. [Suspect]
     Active Substance: CLOZAPINE
     Indication: PSYCHOTIC DISORDER
     Dosage: 25 MG ONCE DAILY AND 50 MG ONCE DAILY, 2X/DAY (BID)
     Route: 065
     Dates: start: 20140912, end: 20140912
  21. HYDROXYZINE [Suspect]
     Active Substance: HYDROXYZINE HYDROCHLORIDE
     Indication: PRODUCT USED FOR UNKNOWN INDICATION
     Route: 065
  22. CLOZAPINE. [Suspect]
     Active Substance: CLOZAPINE
     Indication: ANTISOCIAL PERSONALITY DISORDER
     Route: 065
     Dates: start: 20140909, end: 20140909
  23. CLOZAPINE. [Suspect]
     Active Substance: CLOZAPINE
     Route: 065
     Dates: start: 20140914, end: 20140914
  24. CLOZAPINE. [Suspect]
     Active Substance: CLOZAPINE
     Dosage: 75 MG ONCE DAILY AND 100 MG ONCE DAILY, 2X/DAY (BID)
     Route: 065
     Dates: start: 20140917, end: 20140917
  25. CLOZAPINE. [Suspect]
     Active Substance: CLOZAPINE
     Route: 065
     Dates: start: 20140911, end: 20140912
  26. CHLORPHENAMINE [Suspect]
     Active Substance: CHLORPHENIRAMINE MALEATE
     Indication: PRODUCT USED FOR UNKNOWN INDICATION
     Route: 065
  27. CLOZAPINE. [Suspect]
     Active Substance: CLOZAPINE
     Dosage: REDUCED DOSE AND PRESCRIBED 25 MG
     Route: 065
     Dates: start: 20140930, end: 20141002

REACTIONS (22)
  - Malaise [Unknown]
  - Refusal of treatment by patient [Unknown]
  - Bone marrow failure [Fatal]
  - Multiple organ dysfunction syndrome [Fatal]
  - Pneumocystis jirovecii pneumonia [Fatal]
  - Infection [Unknown]
  - Acute respiratory distress syndrome [Fatal]
  - Myelodysplastic syndrome [Fatal]
  - Macrocytosis [Fatal]
  - Subarachnoid haemorrhage [Unknown]
  - Oropharyngeal pain [Unknown]
  - Dizziness [Unknown]
  - Constipation [Unknown]
  - Blood urea increased [Unknown]
  - Neutropenic sepsis [Fatal]
  - Tonsillar hypertrophy [Unknown]
  - Personality disorder [Fatal]
  - Agitation [Unknown]
  - Subdural haemorrhage [Unknown]
  - Cardiac arrest [Unknown]
  - Inflammation [Unknown]
  - Product use in unapproved indication [Unknown]

NARRATIVE: CASE EVENT DATE: 2014
